FAERS Safety Report 14591114 (Version 1)
Quarter: 2018Q1

REPORT INFORMATION
  Report Type: Spontaneous
  Country: US (occurrence: US)
  Receive Date: 20180302
  Receipt Date: 20180302
  Transmission Date: 20180509
  Serious: No
  Sender: FDA-Public Use
  Company Number: US-NOVOPROD-568106

PATIENT
  Age: 50 Year
  Sex: Male

DRUGS (1)
  1. VICTOZA [Suspect]
     Active Substance: LIRAGLUTIDE
     Indication: TYPE 1 DIABETES MELLITUS
     Dosage: 2.1 MG, UNK
     Route: 058
     Dates: start: 2013

REACTIONS (5)
  - Product use issue [Not Recovered/Not Resolved]
  - Blood glucose increased [Recovered/Resolved]
  - Product use in unapproved indication [Not Recovered/Not Resolved]
  - Unevaluable event [Recovered/Resolved]
  - Product quality issue [Recovered/Resolved]

NARRATIVE: CASE EVENT DATE: 20171004
